FAERS Safety Report 7482163-7 (Version None)
Quarter: 2011Q2

REPORT INFORMATION
  Report Type: 
  Country: None (occurrence: None)
  Receive Date: 20110516
  Receipt Date: 20110504
  Transmission Date: 20111010
  Serious: Yes (Life-Threatening, Hospitalization)
  Sender: FDA-Public Use
  Company Number: US-PFIZER INC-2011096668

PATIENT
  Sex: Male
  Weight: 55.9 kg

DRUGS (2)
  1. TEMSIROLIMUS [Suspect]
  2. CAPECITABINE [Suspect]

REACTIONS (1)
  - CARDIAC ARREST [None]
